FAERS Safety Report 4993379-3 (Version None)
Quarter: 2006Q2

REPORT INFORMATION
  Report Type: 
  Country: None (occurrence: None)
  Receive Date: 20060503
  Receipt Date: 20060503
  Transmission Date: 20061013
  Serious: Yes (Hospitalization)
  Sender: FDA-Public Use
  Company Number: None

PATIENT
  Age: 34 Year
  Sex: Male
  Weight: 96.1626 kg

DRUGS (1)
  1. VANCOMYCIN [Suspect]
     Indication: PERIRECTAL ABSCESS
     Dosage: 1 GRAM Q 12 HOURS

REACTIONS (5)
  - ANAEMIA [None]
  - BLOOD IRON DECREASED [None]
  - REFUSAL OF TREATMENT BY PATIENT [None]
  - RENAL FAILURE ACUTE [None]
  - WHITE BLOOD CELL COUNT INCREASED [None]
